FAERS Safety Report 18411549 (Version 3)
Quarter: 2021Q1

REPORT INFORMATION
  Report Type: Report from Study
  Country: US (occurrence: US)
  Receive Date: 20201021
  Receipt Date: 20210201
  Transmission Date: 20210419
  Serious: Yes (Other)
  Sender: FDA-Public Use
  Company Number: NVSC2020US057898

PATIENT
  Sex: Male

DRUGS (1)
  1. ENTRESTO [Suspect]
     Active Substance: SACUBITRIL\VALSARTAN
     Indication: CARDIAC FAILURE CONGESTIVE
     Dosage: 1 DF (SACUBITRIL 24MG, VALSARTAN 26 MG), BID
     Route: 048
     Dates: start: 2019

REACTIONS (6)
  - Heart rate decreased [Unknown]
  - Cardiac failure [Unknown]
  - Device electrical impedance issue [Unknown]
  - Arrhythmia [Unknown]
  - Memory impairment [Unknown]
  - Myocardial infarction [Unknown]
